FAERS Safety Report 20031620 (Version 2)
Quarter: 2021Q4

REPORT INFORMATION
  Report Type: Spontaneous
  Country: FR (occurrence: FR)
  Receive Date: 20211103
  Receipt Date: 20211108
  Transmission Date: 20220303
  Serious: Yes (Life-Threatening, Hospitalization, Other)
  Sender: FDA-Public Use
  Company Number: FR-ABBVIE-21K-056-4142046-00

PATIENT
  Age: 39 Year
  Sex: Female

DRUGS (6)
  1. VALPROATE SODIUM [Interacting]
     Active Substance: VALPROATE SODIUM
     Indication: Toxicity to various agents
     Route: 048
  2. VALPROATE SODIUM [Interacting]
     Active Substance: VALPROATE SODIUM
     Route: 048
  3. ALPRAZOLAM [Interacting]
     Active Substance: ALPRAZOLAM
     Indication: Toxicity to various agents
     Route: 048
  4. DIAZEPAM [Interacting]
     Active Substance: DIAZEPAM
     Indication: Toxicity to various agents
     Route: 048
  5. QUETIAPINE FUMARATE [Interacting]
     Active Substance: QUETIAPINE FUMARATE
     Indication: Toxicity to various agents
     Route: 048
  6. PROPRANOLOL [Interacting]
     Active Substance: PROPRANOLOL HYDROCHLORIDE
     Indication: Toxicity to various agents
     Route: 048

REACTIONS (15)
  - Blood creatine phosphokinase increased [Unknown]
  - Heart rate decreased [Unknown]
  - Sinus rhythm [Unknown]
  - Electrocardiogram QRS complex shortened [Unknown]
  - Blood pressure systolic decreased [Unknown]
  - Pneumonia aspiration [Unknown]
  - Lung disorder [Unknown]
  - Toxicity to various agents [Unknown]
  - Drug interaction [Unknown]
  - Intentional overdose [Unknown]
  - Coma [Recovering/Resolving]
  - Hypotension [Unknown]
  - Condition aggravated [Recovering/Resolving]
  - Product use issue [Unknown]
  - Off label use [Unknown]
